FAERS Safety Report 13808426 (Version 3)
Quarter: 2021Q4

REPORT INFORMATION
  Report Type: Report from Study
  Country: JP (occurrence: JP)
  Receive Date: 20170728
  Receipt Date: 20211122
  Transmission Date: 20220304
  Serious: Yes (Hospitalization, Other)
  Sender: FDA-Public Use
  Company Number: JP-002147023-PHJP2017JP023130

PATIENT

DRUGS (10)
  1. RUXOLITINIB [Suspect]
     Active Substance: RUXOLITINIB
     Indication: Myelofibrosis
     Dosage: 5 MG, BID
     Route: 048
     Dates: start: 20150120, end: 20150217
  2. RUXOLITINIB [Suspect]
     Active Substance: RUXOLITINIB
     Dosage: 10 MG, BID
     Route: 048
     Dates: start: 20150217, end: 20150224
  3. RUXOLITINIB [Suspect]
     Active Substance: RUXOLITINIB
     Dosage: 15 MG, BID
     Route: 048
     Dates: start: 20150224, end: 20150803
  4. RUXOLITINIB [Suspect]
     Active Substance: RUXOLITINIB
     Dosage: 10 MG, BID
     Route: 048
     Dates: start: 20150804, end: 20150928
  5. RUXOLITINIB [Suspect]
     Active Substance: RUXOLITINIB
     Dosage: 15MG IN THE MORNING, 10MG IN THE EVENING
     Route: 048
     Dates: start: 20150929, end: 20160329
  6. RUXOLITINIB [Suspect]
     Active Substance: RUXOLITINIB
     Dosage: 10 MG, BID
     Route: 048
     Dates: start: 20160329, end: 20160513
  7. RUXOLITINIB [Suspect]
     Active Substance: RUXOLITINIB
     Dosage: 20MG AND 15MG ON ALTERNATE DAYS
     Route: 048
     Dates: start: 20160513, end: 20160708
  8. RUXOLITINIB [Suspect]
     Active Substance: RUXOLITINIB
     Dosage: 10 MG, BID
     Route: 048
     Dates: start: 20160708
  9. HYDREA [Concomitant]
     Active Substance: HYDROXYUREA
     Indication: Myelofibrosis
     Dosage: 500 MG
     Route: 048
     Dates: end: 20140127
  10. HYDREA [Concomitant]
     Active Substance: HYDROXYUREA
     Dosage: 1000 MG
     Route: 048
     Dates: start: 20140128, end: 20150202

REACTIONS (5)
  - Anaemia [Recovering/Resolving]
  - Bone marrow failure [Unknown]
  - Diarrhoea [Recovered/Resolved]
  - Splenomegaly [Recovering/Resolving]
  - Oesophageal varices haemorrhage [Recovering/Resolving]

NARRATIVE: CASE EVENT DATE: 20150622
